FAERS Safety Report 8837084 (Version 2)
Quarter: 2012Q4

REPORT INFORMATION
  Report Type: 
  Country: US (occurrence: US)
  Receive Date: 20121011
  Receipt Date: 20121129
  Transmission Date: 20130627
  Serious: Yes (Other)
  Sender: FDA-Public Use
  Company Number: CHPA2012US021336

PATIENT
  Age: 81 Year
  Sex: Female

DRUGS (9)
  1. ALPHA-KERI MOISTURE RICH OIL [Suspect]
     Indication: DRY SKIN
     Dosage: UNK, QD
     Route: 061
     Dates: start: 20120924, end: 20120928
  2. CARVEDILOL [Concomitant]
     Indication: BLOOD PRESSURE
     Dosage: 25 mg, QD
  3. AMLODIPINE [Concomitant]
     Indication: BLOOD PRESSURE
     Dosage: 5 mg, QD
  4. SYNTHROID [Concomitant]
     Indication: THYROID DISORDER
     Dosage: 0.75 mg, MWThFSu
  5. SYNTHROID [Concomitant]
     Dosage: 0.50 mg, TSa
  6. GLIMEPIRIDE [Concomitant]
     Indication: DIABETES MELLITUS
     Dosage: 2 mg, QD
  7. VITAMIN D [Concomitant]
     Dosage: Unk, Unk
  8. BIOTIN [Concomitant]
     Dosage: Unk, Unk
  9. CLOPIDOGREL [Concomitant]
     Indication: ANTICOAGULANT THERAPY
     Dosage: Unk, Unk

REACTIONS (4)
  - Dermatitis contact [Recovered/Resolved]
  - Urticaria [Recovered/Resolved]
  - Dermatitis allergic [Recovered/Resolved]
  - Acne [Recovered/Resolved]
